FAERS Safety Report 18298082 (Version 1)
Quarter: 2020Q3

REPORT INFORMATION
  Report Type: Spontaneous
  Country: US (occurrence: US)
  Receive Date: 20200922
  Receipt Date: 20200922
  Transmission Date: 20201103
  Serious: No
  Sender: FDA-Public Use
  Company Number: US-AMARIN PHARMA, INC.-2019AMR000534

PATIENT
  Age: 76 Year
  Sex: Female

DRUGS (3)
  1. VASCEPA [Suspect]
     Active Substance: ICOSAPENT ETHYL
     Route: 048
     Dates: start: 201908
  2. VASCEPA [Suspect]
     Active Substance: ICOSAPENT ETHYL
     Indication: BLOOD TRIGLYCERIDES ABNORMAL
     Route: 048
     Dates: start: 201903, end: 201908
  3. VASCEPA [Suspect]
     Active Substance: ICOSAPENT ETHYL
     Route: 048

REACTIONS (5)
  - Erythema [Recovered/Resolved]
  - Nodule [Unknown]
  - Arthralgia [Recovering/Resolving]
  - Joint swelling [Unknown]
  - Blood triglycerides increased [Unknown]

NARRATIVE: CASE EVENT DATE: 201906
